FAERS Safety Report 9893963 (Version 1)
Quarter: 2014Q1

REPORT INFORMATION
  Report Type: Spontaneous
  Country: US (occurrence: US)
  Receive Date: 20140213
  Receipt Date: 20140213
  Transmission Date: 20141002
  Serious: Yes (Other)
  Sender: FDA-Public Use
  Company Number: US-PFIZER INC-2014037672

PATIENT
  Age: 73 Year
  Sex: Female

DRUGS (28)
  1. JANUVIA [Concomitant]
     Dosage: 100 MG, 1X/DAY (100 MG, 1 TABLET, ORALLY, ONCE A DAY BEFORE SUPPER)
     Route: 048
  2. CRESTOR [Concomitant]
     Dosage: 20 MG, 1X/DAY (20 MG, 1 TABLET, ORALLY, BEDTIME)
     Route: 048
  3. ZOSTAVAX [Concomitant]
     Dosage: UNK (19400 UNT/0.65ML, 1 INJECTION, SUBCUTANEOUS)
     Route: 058
     Dates: start: 20140120, end: 20140120
  4. LYRICA [Suspect]
     Dosage: 50 MG, 1X/DAY (1CAPSULE AT BEDTIME ORALLY)
     Route: 048
  5. ZITHROMAX [Suspect]
     Dosage: 500 MG, 1X/DAY
  6. BREO ELLIPTA [Concomitant]
     Dosage: 1 DF, 1X/DAY (1 PUFF, INHALER, ONCE A DAY RINSE MOUTH WITH WATER AFTERWARDS)
  7. LEVAQUIN [Concomitant]
     Dosage: 500 MG, 1X/DAY
     Route: 048
  8. ALBUTEROL SULFATE [Concomitant]
     Dosage: 2 DF, AS NEEDED (2 PUFFS AS NEEDED, INHALATION, EVERY 4 HRS)
  9. MECLIZINE HYDROCHLORIDE [Concomitant]
     Indication: DIZZINESS
     Dosage: 25 MG, 3X/DAY (1 TABLET AS NEEDED, ORALLY, THREE TIMES A DAY)
     Route: 048
  10. VICODIN [Concomitant]
     Indication: PAIN
     Dosage: UNK (5-500 MG, 1-2 TABLET, ORALLY, EVERY 4 HRS)
     Route: 048
  11. ACTOS [Concomitant]
     Dosage: 45 MG, 1X/DAY
     Route: 048
  12. FENOFIBRATE [Concomitant]
     Dosage: 160 MG, DAILY
     Route: 048
  13. HUMALOG KWIKPEN [Concomitant]
     Dosage: UNK (100 UNIT/ML, 8 UNITS BEFORE BREAKFAST AND 10 UNITS BEFORE SUPPER)
     Route: 058
  14. LANTUS SOLOSTAR [Concomitant]
     Dosage: UNK (100 UNIT/ML, 12 UNITS, SUBCUTAUEOUS, BEDTIME)
     Route: 058
  15. ASPIR-81 [Concomitant]
     Dosage: 81 MG, 1X/DAY
     Route: 048
  16. GLIMEPIRIDE [Concomitant]
     Dosage: UNK (4MG TABLET, AS DIRECTED, ORALLY, 1/2 TABLET BEFORE BREAKFAST AND 1 TABLET BEFORE SUPPER)
     Route: 048
  17. HYDROXYZINE HCL [Concomitant]
     Indication: PRURITUS
     Dosage: 25 MG, 3X/DAY
     Route: 048
  18. FLEXERIL [Concomitant]
     Dosage: 10 MG, 3X/DAY
     Route: 048
  19. VITAMIN D [Concomitant]
     Dosage: 50000 IU, WEEKLY (50000 UNIT, 1 CAPSULE, ORALLY, ONCE A WEEK)
     Route: 048
  20. CARBIDOPA-LEVODOPA [Concomitant]
     Dosage: UNK (25-100 MG TABLET 1 TABLET, ORALLY, THREE TIMES A DAY)
     Route: 048
  21. NIFEDIPINE [Concomitant]
     Dosage: 60 MG, 1X/DAY
     Route: 048
  22. VENTOLIN [Concomitant]
     Dosage: UNK (2 PUFFS AS NEEDED, INHALATION, EVERY 4 HRS)
  23. SYNTHROID [Concomitant]
     Dosage: 125 UG, 1X/DAY (1 TABLET, ORALLY, ONCE A DAY EVERY MORNING ON EMPTY STOMACH. NO FOOD, WATER OR MEDS)
     Route: 048
  24. ZETIA [Concomitant]
     Dosage: 10 MG, 1X/DAY
     Route: 048
  25. CARVEDILOL [Concomitant]
     Dosage: 12.5 MG, 2X/DAY
     Route: 048
  26. LOVAZA [Concomitant]
     Dosage: 2 MG, 2X/DAY (1 GM, 2 CAPSULES, ORALLY, TWICE A DAY)
     Route: 048
  27. LOSARTAN POTASSIUM [Concomitant]
     Dosage: 50 MG, 1X/DAY (100 MG, 1/2 TABLET, ORALLY, ONCE A DAY)
     Route: 048
  28. NIFEREX [Concomitant]
     Dosage: 150 MG, 1X/DAY
     Route: 048

REACTIONS (5)
  - Renal failure [Unknown]
  - Respiratory tract congestion [Unknown]
  - Rash [Unknown]
  - Sleep apnoea syndrome [Unknown]
  - Arthritis [Unknown]
